FAERS Safety Report 6392165-X (Version None)
Quarter: 2009Q4

REPORT INFORMATION
  Report Type: 
  Country: None (occurrence: None)
  Receive Date: 20091005
  Receipt Date: 20090923
  Transmission Date: 20100525
  Serious: Yes (Other)
  Sender: FDA-Public Use
  Company Number: 8052144

PATIENT
  Age: 62 Year
  Sex: Male
  Weight: 95 kg

DRUGS (13)
  1. KEPPRA [Suspect]
     Indication: EPILEPSY
     Dosage: 1000 MG 3/D PO
     Route: 048
     Dates: start: 20080101
  2. VIMPAT [Suspect]
     Indication: EPILEPSY
     Dosage: 100 MG 3/D PO
     Route: 048
     Dates: start: 20090301
  3. PLAVIX [Suspect]
     Indication: CORONARY ARTERY DISEASE
     Dosage: 1/D PO
     Route: 048
     Dates: end: 20090801
  4. TIMOX /00596701/ [Suspect]
     Dosage: 600 MG 2/D PO
     Route: 048
     Dates: start: 20071001
  5. DIGITOXIN INJ [Concomitant]
  6. METOPROLOL RETARD [Concomitant]
  7. LOCOL [Concomitant]
  8. TORSEMIDE [Concomitant]
  9. PENTAERYTHRITOL TETRANITRATE [Concomitant]
  10. DIOVAN HCT [Concomitant]
  11. INSULIN [Concomitant]
  12. FALITHROM [Concomitant]
  13. REDACTONE [Concomitant]

REACTIONS (3)
  - CONDITION AGGRAVATED [None]
  - CONVULSION [None]
  - DRUG INTERACTION [None]
